FAERS Safety Report 7481742-0 (Version None)
Quarter: 2011Q2

REPORT INFORMATION
  Report Type: 
  Country: None (occurrence: None)
  Receive Date: 20110516
  Receipt Date: 20110506
  Transmission Date: 20111010
  Serious: Yes (Hospitalization)
  Sender: FDA-Public Use
  Company Number: B0577742A

PATIENT
  Sex: Female
  Weight: 50 kg

DRUGS (1)
  1. LAPATINIB [Suspect]
     Indication: BREAST CANCER
     Dosage: 1500MG PER DAY
     Route: 048
     Dates: start: 20080629

REACTIONS (4)
  - GASTRITIS [None]
  - ABDOMINAL DISTENSION [None]
  - VOMITING [None]
  - NAUSEA [None]
